FAERS Safety Report 9315227 (Version 1)
Quarter: 2013Q2

REPORT INFORMATION
  Report Type: Spontaneous
  Country: NO (occurrence: NO)
  Receive Date: 20130529
  Receipt Date: 20130529
  Transmission Date: 20140414
  Serious: Yes (Disabling)
  Sender: FDA-Public Use
  Company Number: NO-TEVA-407683ISR

PATIENT
  Age: 54 Year
  Sex: Male

DRUGS (4)
  1. METHOTREXATE [Suspect]
     Indication: PSORIATIC ARTHROPATHY
     Dosage: 15-20 MG/WEEK
     Route: 048
     Dates: end: 201112
  2. LISINOPRIL HYDROCHLORTHIAZID [Concomitant]
     Dosage: 5/7,5 MG X 1
     Route: 048
  3. FOLIC ACID [Concomitant]
  4. BRUFEN RETARD [Concomitant]
     Dosage: 800 MG X 1-2/DAY
     Route: 048

REACTIONS (2)
  - Paresis [Not Recovered/Not Resolved]
  - Muscle contractions involuntary [Not Recovered/Not Resolved]
